FAERS Safety Report 10970387 (Version 1)
Quarter: 2015Q1

REPORT INFORMATION
  Report Type: Spontaneous
  Country: US (occurrence: None)
  Receive Date: 20150330
  Receipt Date: 20150330
  Transmission Date: 20150721
  Serious: Yes (Disabling)
  Sender: FDA-Public Use
  Company Number: None

PATIENT
  Age: 66 Year
  Sex: Male
  Weight: 95.26 kg

DRUGS (10)
  1. HYDROCHLOROTHIAZIDE. [Concomitant]
     Active Substance: HYDROCHLOROTHIAZIDE
  2. MEVACOR [Concomitant]
     Active Substance: LOVASTATIN
  3. GLUCOSMINE [Concomitant]
  4. FLUORACIL [Suspect]
     Active Substance: FLUOROURACIL
     Indication: SKIN LESION
     Dosage: APPLIED TO A SURFACE USUALLY THE SKIN
     Dates: start: 20150228, end: 20150304
  5. VITAMIN D [Concomitant]
     Active Substance: CHOLECALCIFEROL
  6. ASPIRIN. [Concomitant]
     Active Substance: ASPIRIN
  7. MULTIVITAMIN [Concomitant]
     Active Substance: VITAMINS
  8. FLOMAX [Concomitant]
     Active Substance: TAMSULOSIN HYDROCHLORIDE
  9. SAW PALMETTO [Concomitant]
     Active Substance: SAW PALMETTO
  10. GABAPENTIN. [Concomitant]
     Active Substance: GABAPENTIN

REACTIONS (2)
  - Product quality issue [None]
  - Drug ineffective [None]
